FAERS Safety Report 6823113 (Version 15)
Quarter: 2014Q2

REPORT INFORMATION
  Report Type: Report from Study
  Country: US (occurrence: US)
  Receive Date: 20041110
  Receipt Date: 20140609
  Transmission Date: 20141212
  Serious: Yes (Hospitalization)
  Sender: FDA-Public Use
  Company Number: US-BIOGENIDEC-206848

PATIENT
  Age: 57 Year
  Sex: Female

DRUGS (25)
  1. AVONEX [Suspect]
     Indication: MULTIPLE SCLEROSIS
     Route: 030
  2. AVONEX [Suspect]
     Indication: MULTIPLE SCLEROSIS
     Route: 030
     Dates: start: 20000204, end: 20040924
  3. AVONEX [Suspect]
     Indication: MULTIPLE SCLEROSIS
     Route: 030
     Dates: start: 20060102, end: 20060828
  4. AVONEX [Suspect]
     Indication: MULTIPLE SCLEROSIS
     Route: 030
     Dates: start: 20081222
  5. AVONEX [Suspect]
     Indication: MULTIPLE SCLEROSIS
     Route: 030
     Dates: end: 200910
  6. AVONEX [Suspect]
     Indication: MULTIPLE SCLEROSIS
     Route: 030
     Dates: start: 20101201, end: 20121001
  7. AVONEX [Suspect]
     Indication: MULTIPLE SCLEROSIS
     Route: 030
  8. AVONEX [Suspect]
     Indication: MULTIPLE SCLEROSIS
     Route: 030
     Dates: start: 20121212, end: 20131201
  9. PROZAC [Concomitant]
     Indication: DEPRESSION
     Dates: start: 20040713
  10. BACLOFEN [Concomitant]
     Dates: start: 20040713
  11. PROVIGIL [Concomitant]
     Dates: start: 20050516
  12. FOSAMAX [Concomitant]
     Dates: start: 20040713
  13. VICODIN [Concomitant]
  14. CLINDAMYCIN [Concomitant]
  15. ZOFRAN [Concomitant]
     Indication: NAUSEA
     Dates: start: 20041220
  16. PROMETHAZINE [Concomitant]
  17. NEULASTA [Concomitant]
     Dates: start: 20041220
  18. CYTOXAN [Concomitant]
     Dates: start: 20041220
  19. DOXYRUBICIN HCL [Concomitant]
     Dates: start: 20041220
  20. ARIMIDEX [Concomitant]
  21. PROVIDAL [Concomitant]
  22. SOLSUMAX (NOS) [Concomitant]
  23. MEGESTROL [Concomitant]
  24. CALCIUM [Concomitant]
  25. VITAMIN D [Concomitant]

REACTIONS (11)
  - Breast cancer recurrent [Not Recovered/Not Resolved]
  - Breast cancer stage III [Recovered/Resolved]
  - Gait disturbance [Unknown]
  - Chest wall tumour [Recovered/Resolved]
  - Hypophagia [Recovered/Resolved]
  - Fall [Recovered/Resolved]
  - Limb injury [Unknown]
  - Musculoskeletal disorder [Not Recovered/Not Resolved]
  - Multiple sclerosis relapse [Unknown]
  - Dizziness [Recovered/Resolved]
  - Muscular weakness [Not Recovered/Not Resolved]
